FAERS Safety Report 14925291 (Version 6)
Quarter: 2018Q3

REPORT INFORMATION
  Report Type: Spontaneous
  Country: JP (occurrence: JP)
  Receive Date: 20180522
  Receipt Date: 20180907
  Transmission Date: 20181010
  Serious: Yes (Life-Threatening, Other)
  Sender: FDA-Public Use
  Company Number: JP-009507513-1805JPN001815J

PATIENT
  Age: 49 Year
  Sex: Female
  Weight: 50 kg

DRUGS (14)
  1. CONCENTRATED RED CELLS [Concomitant]
     Active Substance: HUMAN RED BLOOD CELL
     Indication: TRANSFUSION
     Dosage: UNK
     Route: 051
     Dates: start: 20180516
  2. EPHEDRIN [Concomitant]
     Active Substance: EPHEDRINE HYDROCHLORIDE
     Indication: BLOOD PRESSURE MANAGEMENT
     Dosage: 20 MG, UNK
     Route: 042
     Dates: start: 20180516, end: 20180516
  3. BRIDION [Suspect]
     Active Substance: SUGAMMADEX
     Indication: NEUROMUSCULAR BLOCKADE REVERSAL
     Dosage: 200 MG, UNK
     Route: 041
     Dates: start: 20180516, end: 20180516
  4. ULTIVA [Concomitant]
     Active Substance: REMIFENTANIL HYDROCHLORIDE
     Dosage: UNK
     Route: 051
     Dates: start: 20180516, end: 20180516
  5. ANAPEINE [Concomitant]
     Active Substance: ROPIVACAINE HYDROCHLORIDE
     Indication: ANAESTHESIA PROCEDURE
     Dosage: 18 ML, UNK
     Route: 008
     Dates: start: 20180516, end: 20180516
  6. ESLAX [Concomitant]
     Active Substance: ROCURONIUM BROMIDE
     Indication: NEUROMUSCULAR BLOCKING THERAPY
     Dosage: 100 MG, UNK
     Route: 042
     Dates: start: 20180516, end: 20180516
  7. SOLACET D [Concomitant]
     Indication: FLUID REPLACEMENT
     Dosage: UNK
     Route: 051
  8. FENTANYL. [Concomitant]
     Active Substance: FENTANYL
     Indication: GENERAL ANAESTHESIA
     Dosage: 12 ML, UNK
     Route: 042
     Dates: start: 20180516, end: 20180516
  9. CEFMETAZOLE SODIUM [Concomitant]
     Active Substance: CEFMETAZOLE SODIUM
     Indication: ANTIBIOTIC THERAPY
     Dosage: 1 G, UNK
     Route: 042
     Dates: start: 20180516, end: 20180516
  10. SEVOFLURANE. [Concomitant]
     Active Substance: SEVOFLURANE
     Indication: GENERAL ANAESTHESIA
     Dosage: 100 ML, UNK
     Route: 055
     Dates: start: 20180516, end: 20180516
  11. PHYSIO 140 [Concomitant]
     Active Substance: CALCIUM GLUCONATE\DEXTROSE\MAGNESIUM CHLORIDE\POTASSIUM CHLORIDE\SODIUM ACETATE\SODIUM CHLORIDE\TRISODIUM CITRATE DIHYDRATE
     Indication: FLUID REPLACEMENT
     Dosage: UNK
     Route: 051
  12. DROLEPTAN [Concomitant]
     Active Substance: DROPERIDOL
     Indication: GENERAL ANAESTHESIA
     Dosage: 1.25 MG, UNK
     Route: 042
     Dates: start: 20180516, end: 20180516
  13. DIPRIVAN [Concomitant]
     Active Substance: PROPOFOL
     Indication: GENERAL ANAESTHESIA
     Dosage: 90 ML, UNK
     Route: 042
     Dates: start: 20180516, end: 20180517
  14. NEO?SYNESIN [Concomitant]
     Active Substance: PHENYLEPHRINE HYDROCHLORIDE
     Indication: BLOOD PRESSURE MANAGEMENT
     Dosage: 1.4 MG, UNK
     Route: 051

REACTIONS (5)
  - Ventricular flutter [Recovered/Resolved]
  - Cardiac arrest [Recovered/Resolved]
  - Arrhythmia [Recovered/Resolved]
  - Ventricular fibrillation [Recovered/Resolved]
  - Extrasystoles [Unknown]

NARRATIVE: CASE EVENT DATE: 20180516
